FAERS Safety Report 7331410-0 (Version None)
Quarter: 2011Q1

REPORT INFORMATION
  Report Type: 
  Country: None (occurrence: None)
  Receive Date: 20110228
  Receipt Date: 20110228
  Transmission Date: 20110831
  Serious: No
  Sender: FDA-Public Use
  Company Number: None

PATIENT
  Age: 47 Year
  Sex: Female
  Weight: 64.4108 kg

DRUGS (1)
  1. FIORINAL GENERIC 50/ 325 / 40 Q 4 H PRN ORAL [Suspect]
     Indication: MIGRAINE
     Dosage: 50/325/40 Q4 HOURS PRN ORAL
     Route: 048
     Dates: start: 20100301, end: 20100401

REACTIONS (1)
  - VERTIGO [None]
